FAERS Safety Report 21216494 (Version 2)
Quarter: 2022Q4

REPORT INFORMATION
  Report Type: Spontaneous
  Country: ES (occurrence: ES)
  Receive Date: 20220816
  Receipt Date: 20221014
  Transmission Date: 20230113
  Serious: Yes (Death, Life-Threatening, Hospitalization, Other)
  Sender: FDA-Public Use
  Company Number: ES-TEVA-2022-ES-2057788

PATIENT
  Age: 62 Year
  Sex: Male

DRUGS (3)
  1. MYCOPHENOLIC ACID [Suspect]
     Active Substance: MYCOPHENOLIC ACID
     Indication: Immunosuppressant drug therapy
  2. TACROLIMUS [Suspect]
     Active Substance: TACROLIMUS
     Indication: Immunosuppressant drug therapy
  3. CYCLOSPORINE [Suspect]
     Active Substance: CYCLOSPORINE
     Indication: Immunosuppressant drug therapy

REACTIONS (9)
  - Encephalitis [Fatal]
  - Cerebral infarction [Fatal]
  - Lacunar infarction [Fatal]
  - Central nervous system vasculitis [Fatal]
  - Meningitis cryptococcal [Fatal]
  - Ischaemic stroke [Fatal]
  - Intracranial pressure increased [Fatal]
  - Hyponatraemia [Unknown]
  - Drug ineffective [Fatal]
